FAERS Safety Report 18416662 (Version 5)
Quarter: 2021Q1

REPORT INFORMATION
  Report Type: Spontaneous
  Country: JP (occurrence: JP)
  Receive Date: 20201022
  Receipt Date: 20210217
  Transmission Date: 20210419
  Serious: Yes (Hospitalization, Other)
  Sender: FDA-Public Use
  Company Number: JP-TEVA-2020-JP-1841464

PATIENT
  Age: 90 Year
  Sex: Female

DRUGS (12)
  1. PALONOSETRON HYDROCHLORIDE. [Concomitant]
     Active Substance: PALONOSETRON HYDROCHLORIDE
     Dosage: (2ND CYCLE)
     Route: 041
     Dates: start: 20200813
  2. BENDAMUSTINE HYDROCHLORIDE. [Suspect]
     Active Substance: BENDAMUSTINE HYDROCHLORIDE
     Dosage: (2ND CYCLE)
     Route: 042
     Dates: start: 20200813, end: 20200814
  3. RITUXIMAB. [Suspect]
     Active Substance: RITUXIMAB
     Indication: B-CELL LYMPHOMA
     Dosage: (1ST CYCLE)
     Route: 041
     Dates: start: 20200728
  4. CHLORPHENIRAMINE MALEATE. [Concomitant]
     Active Substance: CHLORPHENIRAMINE MALEATE
     Indication: ALLERGY PROPHYLAXIS
     Route: 041
     Dates: start: 20200728, end: 20200818
  5. CEFTRIAXONE SODIUM HYDRATE [Concomitant]
     Active Substance: CEFTRIAXONE SODIUM
     Indication: URINARY TRACT INFECTION
     Route: 041
     Dates: start: 20200701, end: 20200818
  6. SULFAMETHOXAZOLE;TRIMETHOPRIM [Concomitant]
     Active Substance: SULFAMETHOXAZOLE\TRIMETHOPRIM
     Indication: PROPHYLAXIS
     Dosage: .5 DOSAGE FORMS DAILY;
     Route: 048
     Dates: start: 20200717
  7. BENDAMUSTINE HYDROCHLORIDE. [Suspect]
     Active Substance: BENDAMUSTINE HYDROCHLORIDE
     Indication: B-CELL LYMPHOMA
     Dosage: (1ST CYCLE)
     Route: 042
     Dates: start: 20200709, end: 20200710
  8. RITUXIMAB. [Suspect]
     Active Substance: RITUXIMAB
     Dosage: (2ND CYCLE)
     Route: 041
     Dates: start: 20200818
  9. RITUXIMAB. [Suspect]
     Active Substance: RITUXIMAB
     Dosage: (3RD CYCLE)
     Route: 041
     Dates: start: 20200915
  10. PALONOSETRON HYDROCHLORIDE. [Concomitant]
     Active Substance: PALONOSETRON HYDROCHLORIDE
     Indication: B-CELL LYMPHOMA
     Dosage: (1ST CYCLE)
     Route: 041
     Dates: start: 20200709
  11. TEICOPLANIN [Concomitant]
     Active Substance: TEICOPLANIN
     Indication: URINARY TRACT INFECTION
     Dosage: 400 MILLIGRAM DAILY;
     Route: 041
     Dates: start: 20200926, end: 20201026
  12. VALACICLOVIR HYDROCHLORIDE [Concomitant]
     Active Substance: VALACYCLOVIR HYDROCHLORIDE
     Indication: PROPHYLAXIS
     Dosage: 1 DOSAGE FORMS DAILY;
     Route: 048
     Dates: start: 20200710

REACTIONS (6)
  - Myelosuppression [Unknown]
  - Prescribed underdose [Unknown]
  - Aplasia pure red cell [Recovering/Resolving]
  - Reticulocyte count decreased [Unknown]
  - Platelet count decreased [Recovering/Resolving]
  - Myelodysplastic syndrome [Unknown]

NARRATIVE: CASE EVENT DATE: 20200709
